FAERS Safety Report 4599481-2 (Version None)
Quarter: 2005Q1

REPORT INFORMATION
  Report Type: 
  Country: None (occurrence: None)
  Receive Date: 20050303
  Receipt Date: 20050214
  Transmission Date: 20050727
  Serious: Yes (Other)
  Sender: FDA-Public Use
  Company Number: USA050290760

PATIENT
  Age: 65 Year
  Sex: Male

DRUGS (1)
  1. HUMULIN 70/30 [Suspect]
     Indication: DIABETES MELLITUS
     Dosage: 60 U DAY

REACTIONS (3)
  - BLOOD GLUCOSE DECREASED [None]
  - HYPERHIDROSIS [None]
  - PROSTATE CANCER [None]
